FAERS Safety Report 4549415-1 (Version None)
Quarter: 2005Q1

REPORT INFORMATION
  Report Type: 
  Country: None (occurrence: None)
  Receive Date: 20050111
  Receipt Date: 20040407
  Transmission Date: 20050727
  Serious: Yes (Death, Hospitalization)
  Sender: FDA-Public Use
  Company Number: 200411445FR

PATIENT
  Age: 7 Year
  Sex: Male

DRUGS (17)
  1. CLAFORAN [Suspect]
     Indication: INCREASED BRONCHIAL SECRETION
     Route: 042
     Dates: start: 20040302, end: 20040318
  2. CLAFORAN [Suspect]
     Indication: PULMONARY CONGESTION
     Route: 042
     Dates: start: 20040302, end: 20040318
  3. CLAFORAN [Suspect]
     Indication: SPUTUM DISCOLOURED
     Route: 042
     Dates: start: 20040302, end: 20040318
  4. NESDONAL [Suspect]
     Route: 042
     Dates: start: 20040223, end: 20040312
  5. SECTRAL [Suspect]
     Dates: start: 20030101, end: 20040223
  6. LASILIX [Suspect]
     Dates: start: 20040223, end: 20040224
  7. NARCOZEP [Suspect]
     Dates: start: 20040223, end: 20040314
  8. SOLU-MEDROL [Suspect]
     Route: 042
     Dates: start: 20040223
  9. OMEPRAZOLE [Suspect]
     Route: 048
     Dates: start: 20040223, end: 20040318
  10. FENTANYL [Suspect]
     Route: 042
     Dates: start: 20040223, end: 20040323
  11. ADALAT - SLOW RELEASE [Concomitant]
     Route: 048
     Dates: start: 20030101, end: 20040223
  12. ASPEGIC 325 [Concomitant]
     Dates: end: 20040223
  13. ENDOXAN [Concomitant]
     Dates: start: 20031212
  14. ACETAMINOPHEN [Concomitant]
     Dates: start: 20040223, end: 20040226
  15. ORBENIN CAP [Concomitant]
     Dates: start: 20040223, end: 20040226
  16. TEGELINE [Concomitant]
     Dates: start: 20040223, end: 20040228
  17. TRANDATE [Concomitant]
     Dates: start: 20040224

REACTIONS (17)
  - BONE MARROW DEPRESSION [None]
  - COMA [None]
  - DECEREBRATION [None]
  - HAEMORRHAGE [None]
  - HEPATOSPLENOMEGALY [None]
  - HISTIOCYTOSIS HAEMATOPHAGIC [None]
  - HYPERTENSION [None]
  - HYPERTRIGLYCERIDAEMIA [None]
  - HYPOCOAGULABLE STATE [None]
  - INFLAMMATION [None]
  - INTRAVENTRICULAR HAEMORRHAGE [None]
  - LOSS OF CONSCIOUSNESS [None]
  - PANCYTOPENIA [None]
  - PLATELET COUNT DECREASED [None]
  - RESPIRATORY TRACT CONGESTION [None]
  - SPUTUM DISCOLOURED [None]
  - WHITE BLOOD CELL COUNT DECREASED [None]
